FAERS Safety Report 21003791 (Version 1)
Quarter: 2022Q2

REPORT INFORMATION
  Report Type: Spontaneous
  Country: FR (occurrence: FR)
  Receive Date: 20220624
  Receipt Date: 20220624
  Transmission Date: 20220721
  Serious: Yes (Hospitalization)
  Sender: FDA-Public Use
  Company Number: None

PATIENT
  Age: 73 Year
  Sex: Female

DRUGS (4)
  1. METHYLPREDNISOLONE SODIUM SUCCINATE [Suspect]
     Active Substance: METHYLPREDNISOLONE SODIUM SUCCINATE
     Dosage: DAY 1, DAY 8 AND DAY 15 WITH RESUMPTION AT DAY 29
     Route: 041
     Dates: start: 20220311
  2. POLARAMINE [Suspect]
     Active Substance: DEXCHLORPHENIRAMINE MALEATE
     Indication: Drug hypersensitivity
     Dosage: DAY 1, DAY 8 AND DAY 15 WITH RESUMPTION AT DAY 29
     Route: 041
     Dates: start: 20220311
  3. PACLITAXEL [Suspect]
     Active Substance: PACLITAXEL
     Indication: Ovarian epithelial cancer
     Dosage: 120 MG (DAY 1, DAY 8 AND DAY 15 WITH RESUMPTION AT DAY 29)
     Route: 041
     Dates: start: 20220311
  4. CARBOPLATIN [Suspect]
     Active Substance: CARBOPLATIN
     Indication: Ovarian epithelial cancer
     Dosage: 190 MG  (DAY 1, DAY 8 AND DAY 15 WITH RESUMPTION AT DAY 29)
     Route: 041
     Dates: start: 20220311

REACTIONS (2)
  - Catheter site extravasation [Recovering/Resolving]
  - Catheter site oedema [Recovering/Resolving]

NARRATIVE: CASE EVENT DATE: 20220513
